FAERS Safety Report 23710106 (Version 5)
Quarter: 2024Q3

REPORT INFORMATION
  Report Type: Spontaneous
  Country: US (occurrence: US)
  Receive Date: 20240405
  Receipt Date: 20240809
  Transmission Date: 20241017
  Serious: No
  Sender: BIOVITRUM
  Company Number: US-BIOVITRUM-2024-US-005224

PATIENT
  Age: 67 Year
  Sex: Male

DRUGS (6)
  1. VONJO [Suspect]
     Active Substance: PACRITINIB
     Indication: Myeloproliferative neoplasm
     Dosage: TWICE A DAY
     Route: 048
     Dates: start: 20240329
  2. VONJO [Suspect]
     Active Substance: PACRITINIB
     Dosage: TWICE A DAY
     Route: 048
     Dates: start: 20240329
  3. OXYCODONE [Concomitant]
     Active Substance: OXYCODONE
     Indication: Product used for unknown indication
  4. IRON [Concomitant]
     Active Substance: IRON
     Indication: Product used for unknown indication
  5. VITAMIN D3 [Concomitant]
     Active Substance: CHOLECALCIFEROL
     Indication: Product used for unknown indication
  6. VITAMIN K 2 [Concomitant]
     Indication: Product used for unknown indication

REACTIONS (11)
  - Off label use [Not Recovered/Not Resolved]
  - Night sweats [Unknown]
  - Decreased appetite [Recovering/Resolving]
  - Abdominal pain upper [Unknown]
  - Eye contusion [Unknown]
  - Pain [Unknown]
  - Gait disturbance [Unknown]
  - Blood iron decreased [Unknown]
  - Diarrhoea [Recovering/Resolving]
  - Vomiting [Recovering/Resolving]
  - Gastroenteritis viral [Recovering/Resolving]

NARRATIVE: CASE EVENT DATE: 20240329
